FAERS Safety Report 8364083-9 (Version None)
Quarter: 2012Q2

REPORT INFORMATION
  Report Type: 
  Country: None (occurrence: None)
  Receive Date: 20120514
  Receipt Date: 20120508
  Transmission Date: 20120825
  Serious: Yes (Death)
  Sender: FDA-Public Use
  Company Number: DSA_56002_2012

PATIENT
  Sex: Male

DRUGS (1)
  1. XENAZINE [Suspect]
     Indication: HUNTINGTON'S DISEASE
     Dosage: 75 MG BID ORAL
     Route: 048
     Dates: start: 20110809, end: 20120328

REACTIONS (3)
  - CONDITION AGGRAVATED [None]
  - HUNTINGTON'S DISEASE [None]
  - RESPIRATORY FAILURE [None]
